FAERS Safety Report 8728086 (Version 2)
Quarter: 2012Q4

REPORT INFORMATION
  Report Type: 
  Country: DE (occurrence: DE)
  Receive Date: 20120817
  Receipt Date: 20121029
  Transmission Date: 20130627
  Serious: Yes (Hospitalization)
  Sender: FDA-Public Use
  Company Number: DE-BIOGENIDEC-2012BI030578

PATIENT
  Age: 40 Year
  Sex: Male
  Weight: 120 kg

DRUGS (1)
  1. AVONEX [Suspect]
     Indication: MULTIPLE SCLEROSIS
     Route: 030
     Dates: start: 20070801, end: 20110815

REACTIONS (1)
  - Multiple sclerosis [Recovered/Resolved with Sequelae]
